FAERS Safety Report 11375555 (Version 1)
Quarter: 2015Q3

REPORT INFORMATION
  Report Type: Spontaneous
  Country: JP (occurrence: JP)
  Receive Date: 20150813
  Receipt Date: 20150813
  Transmission Date: 20151125
  Serious: Yes (Death, Other)
  Sender: FDA-Public Use
  Company Number: JP-PFIZER INC-2015098481

PATIENT
  Age: 80 Year
  Sex: Male
  Weight: 33.5 kg

DRUGS (5)
  1. FOSPHENYTOIN SODIUM. [Suspect]
     Active Substance: FOSPHENYTOIN SODIUM
     Dosage: 375 ML, SINGLE
     Route: 042
     Dates: start: 20150315, end: 20150315
  2. FOSPHENYTOIN SODIUM. [Suspect]
     Active Substance: FOSPHENYTOIN SODIUM
     Indication: STATUS EPILEPTICUS
     Dosage: 375 ML, SINGLE
     Route: 042
     Dates: start: 20150312, end: 20150312
  3. FOSPHENYTOIN SODIUM. [Suspect]
     Active Substance: FOSPHENYTOIN SODIUM
     Dosage: 150 ML, SINGLE
     Route: 042
     Dates: start: 20150318, end: 20150320
  4. FOSPHENYTOIN SODIUM. [Suspect]
     Active Substance: FOSPHENYTOIN SODIUM
     Indication: BRAIN CONTUSION
     Dosage: 375 ML, 2X/DAY
     Route: 042
     Dates: start: 20150313, end: 20150313
  5. FOSPHENYTOIN SODIUM. [Suspect]
     Active Substance: FOSPHENYTOIN SODIUM
     Dosage: 750 ML, SINGLE
     Route: 042
     Dates: start: 20150314, end: 20150314

REACTIONS (3)
  - Subdural haematoma [Fatal]
  - Generalised tonic-clonic seizure [Recovered/Resolved]
  - Blood calcium decreased [Unknown]

NARRATIVE: CASE EVENT DATE: 20150312
